FAERS Safety Report 10640168 (Version 1)
Quarter: 2014Q4

REPORT INFORMATION
  Report Type: Spontaneous
  Country: US (occurrence: US)
  Receive Date: 20141209
  Receipt Date: 20141209
  Transmission Date: 20150529
  Serious: Yes (Hospitalization, Other)
  Sender: FDA-Public Use
  Company Number: US-JNJFOC-20141118907

PATIENT
  Age: 64 Year
  Sex: Female
  Weight: 63.5 kg

DRUGS (2)
  1. XARELTO [Suspect]
     Active Substance: RIVAROXABAN
     Indication: THROMBOSIS PROPHYLAXIS
     Route: 048
  2. XARELTO [Suspect]
     Active Substance: RIVAROXABAN
     Indication: KNEE ARTHROPLASTY
     Route: 048

REACTIONS (6)
  - Adrenal haemorrhage [Unknown]
  - Primary adrenal insufficiency [Unknown]
  - Pleural effusion [Unknown]
  - Hepatomegaly [Unknown]
  - Diverticulitis [Unknown]
  - Atelectasis [Unknown]

NARRATIVE: CASE EVENT DATE: 20141117
